FAERS Safety Report 24888532 (Version 1)
Quarter: 2025Q1

REPORT INFORMATION
  Report Type: Spontaneous
  Country: US (occurrence: US)
  Receive Date: 20250127
  Receipt Date: 20250127
  Transmission Date: 20250409
  Serious: No
  Sender: JOHNSON AND JOHNSON
  Company Number: US-JNJFOC-20250101763

PATIENT
  Age: 38 Year
  Sex: Female
  Weight: 56.7 kg

DRUGS (11)
  1. MACITENTAN\TADALAFIL [Suspect]
     Active Substance: MACITENTAN\TADALAFIL
     Indication: Product used for unknown indication
     Route: 048
  2. ORENITRAM [Suspect]
     Active Substance: TREPROSTINIL
     Indication: Pulmonary arterial hypertension
     Route: 048
     Dates: start: 20241029
  3. ORENITRAM [Suspect]
     Active Substance: TREPROSTINIL
     Route: 048
     Dates: start: 20241029
  4. ORENITRAM [Suspect]
     Active Substance: TREPROSTINIL
     Route: 048
     Dates: start: 2024
  5. ORENITRAM [Suspect]
     Active Substance: TREPROSTINIL
     Route: 048
     Dates: start: 20241029
  6. AMLODIPINE BESYLATE [Concomitant]
     Active Substance: AMLODIPINE BESYLATE
  7. LASIX [Concomitant]
     Active Substance: FUROSEMIDE
  8. SILDENAFIL CITRATE [Concomitant]
     Active Substance: SILDENAFIL CITRATE
  9. ALBUTEROL SULFATE [Concomitant]
     Active Substance: ALBUTEROL SULFATE
  10. POTASSIUM CHLORIDE [Concomitant]
     Active Substance: POTASSIUM CHLORIDE
  11. AMBRISENTAN [Concomitant]
     Active Substance: AMBRISENTAN

REACTIONS (4)
  - Chest discomfort [Unknown]
  - Musculoskeletal discomfort [Unknown]
  - Malaise [Recovering/Resolving]
  - Panic attack [Unknown]

NARRATIVE: CASE EVENT DATE: 20240101
